FAERS Safety Report 5337877-1 (Version None)
Quarter: 2007Q2

REPORT INFORMATION
  Report Type: 
  Country: None (occurrence: None)
  Receive Date: 20070309
  Receipt Date: 20060209
  Transmission Date: 20071010
  Serious: No
  Sender: FDA-Public Use
  Company Number: 06P-163-0325228-00

PATIENT
  Age: 17 Year
  Sex: Male
  Weight: 90.7194 kg

DRUGS (2)
  1. CYLERT [Suspect]
     Indication: ATTENTION DEFICIT/HYPERACTIVITY DISORDER
     Dosage: 75 MG, 2 IN 1 D, PER ORAL
     Route: 048
  2. INHALER [Concomitant]

REACTIONS (1)
  - DRUG INEFFECTIVE [None]
